FAERS Safety Report 9496495 (Version 1)
Quarter: 2013Q3

REPORT INFORMATION
  Report Type: Spontaneous
  Country: US (occurrence: US)
  Receive Date: 20130904
  Receipt Date: 20130904
  Transmission Date: 20140515
  Serious: Yes (Hospitalization)
  Sender: FDA-Public Use
  Company Number: PHEH2013US018443

PATIENT
  Sex: 0

DRUGS (2)
  1. CLOZARIL [Suspect]
     Dosage: UNK UKN, UNK
  2. CLOZARIL [Suspect]
     Dosage: UNK UKN, UNK

REACTIONS (2)
  - Intestinal perforation [Unknown]
  - Ileus paralytic [Unknown]
